FAERS Safety Report 20735447 (Version 2)
Quarter: 2022Q2

REPORT INFORMATION
  Report Type: Other
  Country: BD (occurrence: None)
  Receive Date: 20220421
  Receipt Date: 20220527
  Transmission Date: 20220720
  Serious: Yes (Death, Hospitalization)
  Sender: FDA-Public Use
  Company Number: BD-ROCHE-3078581

PATIENT
  Age: 50 Year
  Sex: Female

DRUGS (1)
  1. AVASTIN [Suspect]
     Active Substance: BEVACIZUMAB
     Indication: Glioblastoma
     Route: 065

REACTIONS (3)
  - Feeding disorder [Unknown]
  - Neoplasm [Unknown]
  - Death [Fatal]

NARRATIVE: CASE EVENT DATE: 20220413
